FAERS Safety Report 7677503-X (Version None)
Quarter: 2011Q3

REPORT INFORMATION
  Report Type: 
  Country: None (occurrence: None)
  Receive Date: 20110808
  Receipt Date: 20110722
  Transmission Date: 20111222
  Serious: Yes (Life-Threatening, Other)
  Sender: FDA-Public Use
  Company Number: AUR-APL-2011-04427

PATIENT
  Age: 59 Year
  Sex: Female

DRUGS (5)
  1. AMLODIPINE [Concomitant]
  2. SIMVASTATIN [Concomitant]
  3. METFORMIN HCL [Suspect]
     Indication: DIABETES MELLITUS
     Dosage: (1000 MG),ORAL
     Route: 048
  4. ASPIRIN [Concomitant]
  5. RAMIPRIL [Concomitant]

REACTIONS (4)
  - LACTIC ACIDOSIS [None]
  - BLOOD POTASSIUM DECREASED [None]
  - VOMITING [None]
  - RENAL FAILURE ACUTE [None]
